FAERS Safety Report 18294085 (Version 3)
Quarter: 2020Q4

REPORT INFORMATION
  Report Type: Report from Study
  Country: US (occurrence: US)
  Receive Date: 20200922
  Receipt Date: 20201005
  Transmission Date: 20210113
  Serious: No
  Sender: FDA-Public Use
  Company Number: NVSC2020US256906

PATIENT
  Age: 2 Month
  Sex: Male

DRUGS (1)
  1. ZOLGENSMA [Suspect]
     Active Substance: ONASEMNOGENE ABEPARVOVEC-XIOI
     Indication: SPINAL MUSCULAR ATROPHY
     Dosage: UNK, ONCE/SINGLE
     Route: 042
     Dates: start: 20200915, end: 20200915

REACTIONS (4)
  - Decreased appetite [Unknown]
  - Eating disorder [Unknown]
  - Restlessness [Unknown]
  - Vomiting [Unknown]

NARRATIVE: CASE EVENT DATE: 20200916
